FAERS Safety Report 17435078 (Version 1)
Quarter: 2020Q1

REPORT INFORMATION
  Report Type: Spontaneous
  Country: CA (occurrence: CA)
  Receive Date: 20200219
  Receipt Date: 20200219
  Transmission Date: 20200409
  Serious: Yes (Death, Other)
  Sender: FDA-Public Use
  Company Number: CA-JNJFOC-20200224824

PATIENT
  Sex: Male

DRUGS (17)
  1. SYNTHROID [Concomitant]
     Active Substance: LEVOTHYROXINE SODIUM
     Dosage: 1 DF, QD
     Dates: start: 20191029
  2. M-ESLON [Concomitant]
     Active Substance: MORPHINE SULFATE
     Dosage: UNK
     Dates: start: 20191018
  3. BACLOFEN. [Concomitant]
     Active Substance: BACLOFEN
     Dosage: 1 DF, BID
     Dates: start: 20191011
  4. SANDOZ RABEPRAZOLE [Concomitant]
     Active Substance: RABEPRAZOLE
     Dosage: 20 MG, BID
     Dates: start: 20191011
  5. TAZOCIN [Concomitant]
     Active Substance: PIPERACILLIN SODIUM\TAZOBACTAM SODIUM
  6. STATEX [MORPHINE SULFATE] [Concomitant]
     Active Substance: MORPHINE SULFATE
     Dosage: UNK
     Dates: start: 20191021
  7. VENOFER [Concomitant]
     Active Substance: IRON SUCROSE
     Dosage: UNK
     Route: 042
     Dates: start: 20190724
  8. RIVAROXABAN [Suspect]
     Active Substance: RIVAROXABAN
     Indication: PRODUCT USED FOR UNKNOWN INDICATION
     Route: 048
  9. DICYCLOMINE [DICYCLOVERINE HYDROCHLORIDE] [Concomitant]
     Dosage: 1 DF, Q8HR
     Dates: start: 20191018
  10. IRBESARTAN. [Concomitant]
     Active Substance: IRBESARTAN
     Dosage: 1 DF, QD
     Dates: start: 20191029
  11. EMOLAX [SODIUM PICOSULFATE] [Concomitant]
     Indication: CONSTIPATION
     Dosage: UNK
     Dates: start: 20190702
  12. AXITINIB [Suspect]
     Active Substance: AXITINIB
     Indication: RENAL CELL CARCINOMA
     Dosage: UNK
     Route: 065
     Dates: start: 20190628, end: 20191103
  13. METFORMIN [Concomitant]
     Active Substance: METFORMIN HYDROCHLORIDE
     Dosage: 1 DF, QD
     Route: 048
     Dates: start: 20191029
  14. MORPHINE SULFATE. [Concomitant]
     Active Substance: MORPHINE SULFATE
     Dosage: UNK
  15. GLICLAZIDE [Concomitant]
     Active Substance: GLICLAZIDE
     Dosage: 1 DF, QD
     Dates: start: 20191029
  16. PROCHLORAZINE [Concomitant]
     Indication: NAUSEA
     Dosage: 1 DF, Q8HR
     Dates: start: 20190913
  17. PREGABALINE [Concomitant]
     Active Substance: PREGABALIN
     Dosage: UNK

REACTIONS (3)
  - Cellulitis [Unknown]
  - Death [Fatal]
  - Pain [Unknown]

NARRATIVE: CASE EVENT DATE: 20191101
